FAERS Safety Report 9537815 (Version 2)
Quarter: 2013Q4

REPORT INFORMATION
  Report Type: Spontaneous
  Country: US (occurrence: US)
  Receive Date: 20130919
  Receipt Date: 20131122
  Transmission Date: 20140711
  Serious: Yes (Other)
  Sender: FDA-Public Use
  Company Number: US-ABBVIE-13P-163-1146438-00

PATIENT
  Age: 57 Year
  Sex: Male
  Weight: 55.84 kg

DRUGS (3)
  1. HUMIRA [Suspect]
     Indication: PSORIASIS
     Route: 058
     Dates: start: 20120521, end: 20130317
  2. CLOBETASOL PROPIONATE [Concomitant]
     Indication: PRODUCT USED FOR UNKNOWN INDICATION
     Dosage: TWICE A DAY FOR 2 WEEKS THEN WEEKENDS ONLY
     Route: 061
     Dates: start: 20120419, end: 20120711
  3. CALCIPOTRIENE [Concomitant]
     Indication: PRODUCT USED FOR UNKNOWN INDICATION
     Dosage: TWICE A DAY MON - FRI; AFTER STEROID TAPER TO WEEKENDS
     Route: 061
     Dates: start: 20120504, end: 20120711

REACTIONS (7)
  - Metastatic squamous cell carcinoma [Unknown]
  - Metastases to bone [Unknown]
  - Fatigue [Unknown]
  - Pyrexia [Unknown]
  - Red blood cell count decreased [Unknown]
  - Haematocrit decreased [Unknown]
  - Haemoglobin decreased [Unknown]
